FAERS Safety Report 8882633 (Version 2)
Quarter: 2012Q4

REPORT INFORMATION
  Report Type: 
  Country: US (occurrence: US)
  Receive Date: 20121105
  Receipt Date: 20121218
  Transmission Date: 20130627
  Serious: No
  Sender: FDA-Public Use
  Company Number: US-009507513-1210USA006243

PATIENT
  Sex: Female

DRUGS (2)
  1. SINGULAIR [Suspect]
     Indication: HYPERSENSITIVITY
     Dosage: 10 mg, qd
     Route: 048
  2. ALLEGRA [Concomitant]

REACTIONS (2)
  - Blood triglycerides increased [Not Recovered/Not Resolved]
  - Blood glucose increased [Not Recovered/Not Resolved]
